FAERS Safety Report 6681770-9 (Version None)
Quarter: 2010Q2

REPORT INFORMATION
  Report Type: 
  Country: None (occurrence: None)
  Receive Date: 20100414
  Receipt Date: 20100401
  Transmission Date: 20101027
  Serious: No
  Sender: FDA-Public Use
  Company Number: US-B.I. PHARMACEUTICALS,INC./RIDGEFIELD-2010-BP-03810BP

PATIENT
  Sex: Male

DRUGS (7)
  1. SPIRIVA [Suspect]
     Indication: CHRONIC OBSTRUCTIVE PULMONARY DISEASE
     Dosage: 18 MCG
     Route: 055
     Dates: start: 20100201, end: 20100206
  2. CELEBREX [Concomitant]
     Indication: DEPRESSION
     Route: 048
  3. NEXIUM [Concomitant]
     Indication: ABDOMINAL DISCOMFORT
     Route: 048
  4. LASIX [Concomitant]
     Indication: FLUID RETENTION
     Route: 048
     Dates: start: 20080501
  5. LASIX [Concomitant]
     Indication: HEPATIC CIRRHOSIS
  6. METHADONE HCL [Concomitant]
     Indication: NEUROPATHY PERIPHERAL
     Route: 048
     Dates: start: 20080101
  7. METHADONE HCL [Concomitant]
     Indication: HEPATIC CIRRHOSIS

REACTIONS (2)
  - DIZZINESS [None]
  - EYE DISORDER [None]
